FAERS Safety Report 6303552-X (Version None)
Quarter: 2009Q3

REPORT INFORMATION
  Report Type: 
  Country: None (occurrence: None)
  Receive Date: 20090807
  Receipt Date: 20090807
  Transmission Date: 20100115
  Serious: Yes (Other)
  Sender: FDA-Public Use
  Company Number: None

PATIENT
  Age: 47 Year
  Sex: Female
  Weight: 81.6475 kg

DRUGS (1)
  1. LYRICA [Suspect]
     Indication: FIBROMYALGIA
     Dosage: 1 CAPSULE 3 TIMES A DAY PO
     Route: 048
     Dates: start: 20080514, end: 20090614

REACTIONS (4)
  - ALOPECIA [None]
  - ASTHENIA [None]
  - OEDEMA PERIPHERAL [None]
  - VISION BLURRED [None]
